FAERS Safety Report 13657263 (Version 1)
Quarter: 2017Q2

REPORT INFORMATION
  Report Type: Spontaneous
  Country: US (occurrence: US)
  Receive Date: 20170615
  Receipt Date: 20170615
  Transmission Date: 20170830
  Serious: No
  Sender: FDA-Public Use
  Company Number: US-ASTRAZENECA-2017SE12264

PATIENT
  Sex: Female
  Weight: 90.7 kg

DRUGS (2)
  1. VALIUM [Concomitant]
     Active Substance: DIAZEPAM
     Indication: SLEEP DISORDER
  2. ARIMIDEX [Suspect]
     Active Substance: ANASTROZOLE
     Indication: BREAST CANCER FEMALE
     Dosage: GENERIC , 1MG DAILY
     Route: 048
     Dates: start: 201701

REACTIONS (4)
  - Insomnia [Unknown]
  - Fatigue [Unknown]
  - Drug intolerance [Unknown]
  - Headache [Unknown]
